FAERS Safety Report 18456552 (Version 1)
Quarter: 2020Q4

REPORT INFORMATION
  Report Type: Spontaneous
  Country: US (occurrence: US)
  Receive Date: 20201102
  Receipt Date: 20201102
  Transmission Date: 20210114
  Serious: Yes (Death)
  Sender: FDA-Public Use
  Company Number: None

PATIENT
  Age: 74 Year
  Sex: Female

DRUGS (1)
  1. TADALAFIL TAB 20MG A2 [Suspect]
     Active Substance: TADALAFIL
     Route: 048
     Dates: start: 201910

REACTIONS (1)
  - Death [None]

NARRATIVE: CASE EVENT DATE: 20201026
